FAERS Safety Report 12596470 (Version 2)
Quarter: 2016Q3

REPORT INFORMATION
  Report Type: Spontaneous
  Country: US (occurrence: US)
  Receive Date: 20160726
  Receipt Date: 20160816
  Transmission Date: 20161109
  Serious: No
  Sender: FDA-Public Use
  Company Number: US-PFIZER INC-2016360938

PATIENT
  Age: 62 Year
  Sex: Male

DRUGS (1)
  1. VIAGRA [Suspect]
     Active Substance: SILDENAFIL CITRATE
     Indication: ERECTILE DYSFUNCTION
     Dosage: 50 MG, AS NEEDED

REACTIONS (4)
  - Drug ineffective [Unknown]
  - Headache [Recovered/Resolved]
  - Product quality issue [Unknown]
  - Paraesthesia [Recovered/Resolved]
